FAERS Safety Report 4306519-6 (Version None)
Quarter: 2004Q1

REPORT INFORMATION
  Report Type: 
  Country: None (occurrence: None)
  Receive Date: 20040225
  Receipt Date: 20030815
  Transmission Date: 20041129
  Serious: No
  Sender: FDA-Public Use
  Company Number: US-BRISTOL-MYERS SQUIBB COMPANY-12375044

PATIENT
  Age: 45 Year
  Sex: Female

DRUGS (3)
  1. EXCEDRIN ES TABS [Suspect]
     Indication: HEADACHE
     Dosage: NUMBER OF DOSAGES:  1 TO 2 TIMES PER WEEK.
     Route: 048
  2. SYNTHROID [Interacting]
     Indication: HYPOTHYROIDISM
  3. TOPAMAX [Concomitant]
     Dosage: INITIATED 3 TO 4 MONTHS AGO.

REACTIONS (2)
  - DRUG INTERACTION [None]
  - HYPOTHYROIDISM [None]
